FAERS Safety Report 18263211 (Version 2)
Quarter: 2020Q4

REPORT INFORMATION
  Report Type: Spontaneous
  Country: FR (occurrence: FR)
  Receive Date: 20200914
  Receipt Date: 20201222
  Transmission Date: 20210113
  Serious: Yes (Death, Life-Threatening)
  Sender: FDA-Public Use
  Company Number: FR-TEVA-2020-FR-1826390

PATIENT
  Age: 68 Year
  Sex: Male
  Weight: 97 kg

DRUGS (5)
  1. VINCRISTINE (SULFATE DE) [Suspect]
     Active Substance: VINCRISTINE SULFATE
     Indication: LYMPHOMA
     Dosage: 0.8 MG / DAY
     Route: 041
     Dates: start: 20200731, end: 20200808
  2. SOLUPRED (PREDNISOLONE SODIUM SULFOBENZOATE) [Suspect]
     Active Substance: PREDNISOLONE SODIUM METAZOATE
     Indication: LYMPHOMA
     Dosage: 120 MG
     Route: 048
     Dates: start: 20200730, end: 20200805
  3. ENDOXAN [Suspect]
     Active Substance: CYCLOPHOSPHAMIDE
     Indication: LYMPHOMA
     Dosage: 600 MG
     Route: 042
     Dates: start: 20200731, end: 20200731
  4. DOXORUBICINE TEVA [Concomitant]
     Active Substance: DOXORUBICIN
     Indication: LYMPHOMA
     Dosage: 20 MG
     Route: 041
     Dates: start: 20200807, end: 20200808
  5. ETOPOPHOS [Concomitant]
     Active Substance: ETOPOSIDE PHOSPHATE
     Indication: LYMPHOMA
     Dosage: 200 MG
     Route: 041
     Dates: start: 20200807, end: 20200808

REACTIONS (2)
  - Blood bilirubin increased [Fatal]
  - Hepatitis [Fatal]

NARRATIVE: CASE EVENT DATE: 20200803
